FAERS Safety Report 4677787-6 (Version None)
Quarter: 2005Q2

REPORT INFORMATION
  Report Type: 
  Country: None (occurrence: None)
  Receive Date: 20050531
  Receipt Date: 20050516
  Transmission Date: 20051028
  Serious: Yes (Hospitalization)
  Sender: FDA-Public Use
  Company Number: FR-JNJFOC-20050504041

PATIENT
  Age: 12 Year
  Sex: Male

DRUGS (1)
  1. HALDOL DECANOAS [Suspect]
     Indication: AGITATION
     Route: 030
     Dates: start: 20030101, end: 20030101

REACTIONS (5)
  - ABNORMAL BEHAVIOUR [None]
  - ANXIETY [None]
  - COMA [None]
  - MORBID THOUGHTS [None]
  - OFF LABEL USE [None]
